FAERS Safety Report 14451609 (Version 1)
Quarter: 2018Q1

REPORT INFORMATION
  Report Type: Spontaneous
  Country: US (occurrence: US)
  Receive Date: 20180129
  Receipt Date: 20180129
  Transmission Date: 20180509
  Serious: No
  Sender: FDA-Public Use
  Company Number: US-PFIZER INC-2016279728

PATIENT
  Age: 60 Year
  Sex: Male
  Weight: 88.45 kg

DRUGS (1)
  1. XELJANZ [Suspect]
     Active Substance: TOFACITINIB CITRATE
     Indication: RHEUMATOID ARTHRITIS
     Dosage: 10 MG, DAILY (XELJANZ 5MG TWO A DAY)

REACTIONS (5)
  - Sinusitis [Recovered/Resolved]
  - Incorrect dose administered [Unknown]
  - Sinus congestion [Recovered/Resolved]
  - Influenza [Recovered/Resolved]
  - Haemoptysis [Recovered/Resolved]

NARRATIVE: CASE EVENT DATE: 201712
